FAERS Safety Report 4502260-5 (Version None)
Quarter: 2004Q4

REPORT INFORMATION
  Report Type: 
  Country: None (occurrence: None)
  Receive Date: 20041109
  Receipt Date: 20041027
  Transmission Date: 20050328
  Serious: Yes (Hospitalization)
  Sender: FDA-Public Use
  Company Number: JP_041004674

PATIENT
  Age: 79 Year
  Sex: Female
  Weight: 65 kg

DRUGS (8)
  1. EVISTA [Suspect]
     Indication: OSTEOPOROSIS
     Dosage: 60 MG/1 DAY
     Dates: start: 20040902, end: 20040911
  2. PRAVASTATIN [Concomitant]
  3. ENALAPRIL MALEATE [Concomitant]
  4. DESYREL [Concomitant]
  5. SOLANAX (ALPRAZOLAM DUM) [Concomitant]
  6. ATENOLOL [Concomitant]
  7. ISOSORBIDE DINITRATE [Concomitant]
  8. LENDORM [Concomitant]

REACTIONS (13)
  - ALANINE AMINOTRANSFERASE INCREASED [None]
  - ASPARTATE AMINOTRANSFERASE INCREASED [None]
  - BLOOD ALKALINE PHOSPHATASE INCREASED [None]
  - BLOOD LACTATE DEHYDROGENASE INCREASED [None]
  - BLOOD PRESSURE DECREASED [None]
  - DEPRESSED LEVEL OF CONSCIOUSNESS [None]
  - EOSINOPHIL COUNT INCREASED [None]
  - FALL [None]
  - FEELING ABNORMAL [None]
  - GAMMA-GLUTAMYLTRANSFERASE INCREASED [None]
  - HEPATIC FUNCTION ABNORMAL [None]
  - RASH [None]
  - THERAPY NON-RESPONDER [None]
